FAERS Safety Report 6816812-0 (Version None)
Quarter: 2010Q3

REPORT INFORMATION
  Report Type: 
  Country: None (occurrence: None)
  Receive Date: 20100706
  Receipt Date: 20100622
  Transmission Date: 20110219
  Serious: Yes (Hospitalization, Other)
  Sender: FDA-Public Use
  Company Number: US-ELI_LILLY_AND_COMPANY-US201005006608

PATIENT
  Age: 62 Year
  Sex: Female
  Weight: 53.968 kg

DRUGS (4)
  1. FORTEO [Suspect]
     Indication: OSTEOPOROSIS
     Dosage: 20 UG, DAILY (1/D)
  2. PROZAC [Concomitant]
  3. KLONOPIN [Concomitant]
  4. CALCIUM CARBONATE [Concomitant]

REACTIONS (2)
  - FALL [None]
  - HIP FRACTURE [None]
